FAERS Safety Report 7467890-X (Version None)
Quarter: 2011Q2

REPORT INFORMATION
  Report Type: 
  Country: None (occurrence: None)
  Receive Date: 20110509
  Receipt Date: 20110221
  Transmission Date: 20111010
  Serious: No
  Sender: FDA-Public Use
  Company Number: US-ALEXION-A201100229

PATIENT
  Sex: Female
  Weight: 117.9 kg

DRUGS (15)
  1. ZOCOR [Suspect]
     Dosage: 20 MG, UNK
  2. KLOR-CON [Concomitant]
     Dosage: 20 MEQ, QD
     Route: 048
  3. BUMETANIDE [Concomitant]
     Dosage: 1 MG, PRN
     Route: 048
  4. VITAMIN D [Concomitant]
     Dosage: 50000 UNITS
     Route: 048
  5. SYNTHROID [Concomitant]
     Dosage: 150 UG, UNK
     Route: 048
  6. FOLIC ACID [Concomitant]
     Dosage: 1 MG, QD
     Route: 048
  7. FERROUS SULFATE TAB [Concomitant]
     Dosage: 325 MG, BID
     Route: 048
  8. VICODIN [Concomitant]
     Dosage: 7.5 MG, UNK
     Route: 048
  9. ALENDRONATE SODIUM [Concomitant]
     Dosage: 70 MG, QW
     Route: 048
  10. ZOFRAN [Concomitant]
     Dosage: 20 MG, UNK
     Route: 048
  11. FORTICAL [Concomitant]
     Dosage: UNK
     Route: 045
  12. CYCLOBENZAPRINE [Concomitant]
     Dosage: 1 TAB TID
     Route: 048
  13. HYDROCHLOROTHIAZIDE [Concomitant]
     Dosage: 25 MG, QD
     Route: 048
  14. NITROGLYCERIN [Concomitant]
     Dosage: 0.3 PRN
     Route: 060
  15. SOLIRIS [Suspect]
     Indication: PAROXYSMAL NOCTURNAL HAEMOGLOBINURIA
     Dosage: 900 MG, Q2W
     Route: 042

REACTIONS (13)
  - SWOLLEN TONGUE [None]
  - HEPATIC STEATOSIS [None]
  - JOINT SWELLING [None]
  - GLOSSODYNIA [None]
  - HEADACHE [None]
  - HAEMOPTYSIS [None]
  - OEDEMA PERIPHERAL [None]
  - NIGHT SWEATS [None]
  - ARTHRALGIA [None]
  - CHEST PAIN [None]
  - INSOMNIA [None]
  - FEELING DRUNK [None]
  - ERYTHEMA [None]
